FAERS Safety Report 5361348-X (Version None)
Quarter: 2007Q2

REPORT INFORMATION
  Report Type: 
  Country: None (occurrence: None)
  Receive Date: 20070612
  Receipt Date: 20070529
  Transmission Date: 20071010
  Serious: Yes (Hospitalization)
  Sender: FDA-Public Use
  Company Number: SPV1-2007-03060

PATIENT
  Age: 65 Year
  Sex: Male

DRUGS (1)
  1. PENTASA [Suspect]
     Indication: COLITIS ULCERATIVE
     Dosage: 750 MG, 3X/DAY.TID, ORAL
     Route: 048
     Dates: start: 20070227, end: 20070508

REACTIONS (1)
  - EOSINOPHILIC PNEUMONIA [None]
